FAERS Safety Report 6520604-X (Version None)
Quarter: 2009Q4

REPORT INFORMATION
  Report Type: 
  Country: None (occurrence: None)
  Receive Date: 20091229
  Receipt Date: 20091222
  Transmission Date: 20100525
  Serious: Yes (Death)
  Sender: FDA-Public Use
  Company Number: IT-ELI_LILLY_AND_COMPANY-IT200912005510

PATIENT

DRUGS (4)
  1. GEMZAR [Suspect]
     Indication: NON-SMALL CELL LUNG CANCER
     Dosage: 1200 MG/M2, ON DAYS 1 AND 8, EVERY 3 WEEKS
     Route: 042
  2. CETUXIMAB [Concomitant]
     Indication: NON-SMALL CELL LUNG CANCER
     Dosage: 400 MG/M2, ON DAY 1
     Route: 042
  3. CETUXIMAB [Concomitant]
     Dosage: 250 MG/M2, WEEKLY (1/W)
     Route: 042
  4. OXYCODONE HCL [Concomitant]
     Dosage: UNK, UNKNOWN
     Route: 065

REACTIONS (1)
  - INTESTINAL PERFORATION [None]
